FAERS Safety Report 10968036 (Version 3)
Quarter: 2015Q2

REPORT INFORMATION
  Report Type: Spontaneous
  Country: IT (occurrence: IT)
  Receive Date: 20150330
  Receipt Date: 20150610
  Transmission Date: 20150821
  Serious: Yes (Other)
  Sender: FDA-Public Use
  Company Number: IT-MYLANLABS-2015M1010084

PATIENT

DRUGS (5)
  1. VALPROATE [Suspect]
     Active Substance: VALPROATE SODIUM
     Indication: BIPOLAR DISORDER
     Dosage: 300 MG, QD
     Route: 065
  2. QUETIAPINE [Concomitant]
     Active Substance: QUETIAPINE
     Indication: BIPOLAR DISORDER
     Dosage: 200 MG, QD
     Route: 065
  3. ESCITALOPRAM [Concomitant]
     Active Substance: ESCITALOPRAM OXALATE
     Dosage: 10 MG, QD
     Route: 065
  4. VALPROATE [Suspect]
     Active Substance: VALPROATE SODIUM
     Dosage: 150 MG, QD (300MG HALF TABLET)
     Route: 065
  5. BUPROPION [Concomitant]
     Active Substance: BUPROPION
     Indication: BIPOLAR DISORDER
     Dosage: 150 MG, QD
     Route: 065

REACTIONS (2)
  - Pericardial effusion [Recovered/Resolved]
  - Pleural effusion [Recovered/Resolved]
